FAERS Safety Report 6011690-4 (Version None)
Quarter: 2008Q4

REPORT INFORMATION
  Report Type: 
  Country: None (occurrence: None)
  Receive Date: 20081218
  Receipt Date: 19860513
  Transmission Date: 20090506
  Serious: Yes (Death, Other)
  Sender: FDA-Public Use
  Company Number: AU-ROCHE-860150045001

PATIENT
  Sex: Female
  Weight: 56 kg

DRUGS (3)
  1. INTERFERON ALFA-2A [Suspect]
     Indication: MULTIPLE MYELOMA
     Route: 058
     Dates: start: 19850208, end: 19850214
  2. INTERFERON ALFA-2A [Suspect]
     Route: 058
     Dates: start: 19850214, end: 19850218
  3. METHYLDOPA [Concomitant]
     Indication: HYPERTENSION
     Route: 065
     Dates: start: 19830321, end: 19850307

REACTIONS (6)
  - COAGULOPATHY [None]
  - GASTROINTESTINAL HAEMORRHAGE [None]
  - HAEMORRHAGE [None]
  - MULTIPLE MYELOMA [None]
  - PARALYSIS FLACCID [None]
  - THROMBOCYTOPENIA [None]
